FAERS Safety Report 12074540 (Version 1)
Quarter: 2016Q1

REPORT INFORMATION
  Report Type: Spontaneous
  Country: US (occurrence: US)
  Receive Date: 20160212
  Receipt Date: 20160212
  Transmission Date: 20160526
  Serious: Yes (Hospitalization)
  Sender: FDA-Public Use
  Company Number: PHHY2016US017878

PATIENT
  Age: 27 Year
  Sex: Female

DRUGS (2)
  1. BROMOCRIPTINE [Suspect]
     Active Substance: BROMOCRIPTINE
     Indication: PROLACTINOMA
     Dosage: UNK
     Route: 065
  2. DESMOPRESSIN [Suspect]
     Active Substance: DESMOPRESSIN
     Indication: DIABETES INSIPIDUS
     Dosage: UNK
     Route: 065

REACTIONS (6)
  - Hemianopia heteronymous [Recovering/Resolving]
  - Blindness unilateral [Recovering/Resolving]
  - Premature delivery [Unknown]
  - Headache [Unknown]
  - Maternal exposure during pregnancy [Unknown]
  - Visual pathway disorder [Recovered/Resolved]
